FAERS Safety Report 7950416-1 (Version None)
Quarter: 2011Q4

REPORT INFORMATION
  Report Type: 
  Country: None (occurrence: None)
  Receive Date: 20111130
  Receipt Date: 20111116
  Transmission Date: 20120403
  Serious: Yes (Other)
  Sender: FDA-Public Use
  Company Number: ES-MYLANLABS-2011S1023789

PATIENT
  Age: 32 Year
  Sex: Female

DRUGS (4)
  1. ONDANSETRON [Suspect]
     Indication: NAUSEA
  2. PROPOFOL [Suspect]
     Indication: BARTHOLIN'S CYST REMOVAL
     Dosage: 1 MG/KG
     Route: 050
  3. FENTANYL-100 [Suspect]
     Indication: BARTHOLIN'S CYST REMOVAL
     Dosage: 100 MICROG
     Route: 042
  4. ONDANSETRON [Suspect]
     Indication: VOMITING

REACTIONS (5)
  - HYPOTENSION [None]
  - CARDIOGENIC SHOCK [None]
  - SINUS TACHYCARDIA [None]
  - RESPIRATORY FAILURE [None]
  - CARDIAC FAILURE [None]
